FAERS Safety Report 5691995-7 (Version None)
Quarter: 2008Q2

REPORT INFORMATION
  Report Type: 
  Country: None (occurrence: None)
  Receive Date: 20080402
  Receipt Date: 20080328
  Transmission Date: 20081010
  Serious: Yes (Death)
  Sender: FDA-Public Use
  Company Number: GB-TEVA-169321ISR

PATIENT
  Age: 19 Year
  Sex: Male
  Weight: 40 kg

DRUGS (3)
  1. NIFEDIPINE [Suspect]
  2. OMEPRAZOLE [Suspect]
  3. ALIMEMAZINE TARTRATE [Suspect]

REACTIONS (2)
  - IDIOPATHIC THROMBOCYTOPENIC PURPURA [None]
  - PLATELET COUNT DECREASED [None]
